FAERS Safety Report 4631902-9 (Version None)
Quarter: 2005Q2

REPORT INFORMATION
  Report Type: 
  Country: None (occurrence: None)
  Receive Date: 20050411
  Receipt Date: 20001030
  Transmission Date: 20051028
  Serious: Yes (Hospitalization)
  Sender: FDA-Public Use
  Company Number: 200021751US

PATIENT
  Age: 74 Year
  Sex: Male

DRUGS (11)
  1. ARAVA [Suspect]
     Indication: RHEUMATOID ARTHRITIS
     Route: 048
     Dates: start: 19990301, end: 19990801
  2. FLOMAX [Concomitant]
     Dosage: DOSE: UNK
  3. SYNTHROID [Concomitant]
     Dosage: DOSE: UNK
  4. PROCARDIA XL [Concomitant]
     Dosage: DOSE: UNK
  5. COLCHICUM JTL LIQ [Concomitant]
     Dosage: DOSE: UNK
  6. LIPITOR [Concomitant]
     Dosage: DOSE: UNK
  7. TOPROL-XL [Concomitant]
     Dosage: DOSE: UNK
  8. DILTIAZEM [Concomitant]
     Dosage: DOSE: UNK
  9. PREDNISONE TAB [Concomitant]
  10. SULINDAC [Concomitant]
     Dosage: DOSE: UNK
     Dates: end: 19990401
  11. EPO [Concomitant]
     Dosage: DOSE: UNK

REACTIONS (7)
  - ABDOMINAL PAIN [None]
  - COLITIS [None]
  - DIARRHOEA [None]
  - GASTROINTESTINAL HAEMORRHAGE [None]
  - NAUSEA [None]
  - PYREXIA [None]
  - VOMITING [None]
